FAERS Safety Report 4706123-1 (Version None)
Quarter: 2005Q2

REPORT INFORMATION
  Report Type: 
  Country: None (occurrence: None)
  Receive Date: 20050627
  Receipt Date: 20050107
  Transmission Date: 20051028
  Serious: Yes (Hospitalization)
  Sender: FDA-Public Use
  Company Number: US-JNJFOC-20041101552

PATIENT
  Age: 71 Year
  Sex: Female

DRUGS (1)
  1. DURAGESIC-100 [Suspect]
     Indication: PAIN
     Dosage: 50 UG/HR, TRANSDERMAL;  25 UG/HR, TRANSDERMAL
     Route: 062

REACTIONS (3)
  - HALLUCINATIONS, MIXED [None]
  - NIGHTMARE [None]
  - SOMNOLENCE [None]
